FAERS Safety Report 4408610-2 (Version None)
Quarter: 2004Q3

REPORT INFORMATION
  Report Type: 
  Country: None (occurrence: None)
  Receive Date: 20040723
  Receipt Date: 20040720
  Transmission Date: 20050211
  Serious: Yes (Death)
  Sender: FDA-Public Use
  Company Number: TPG0T01241197

PATIENT
  Age: 66 Year
  Sex: Male

DRUGS (1)
  1. TRENANTONE (LEUPRORELIN) 11.25 MILLIGRAM, INJECTION) [Suspect]
     Indication: PROSTATE CANCER
     Dosage: 11.25 MG (11.25 MG, 1 IN 3 M) SUBCUTANEOUS
     Route: 058
     Dates: start: 19961119, end: 19961119

REACTIONS (1)
  - MYOCARDIAL INFARCTION [None]
